FAERS Safety Report 6906437-0 (Version None)
Quarter: 2010Q3

REPORT INFORMATION
  Report Type: 
  Country: None (occurrence: None)
  Receive Date: 20100804
  Receipt Date: 20100726
  Transmission Date: 20110219
  Serious: Yes (Other)
  Sender: FDA-Public Use
  Company Number: B0667758A

PATIENT
  Age: 62 Year
  Sex: Female

DRUGS (1)
  1. PAXIL [Suspect]
     Indication: APATHY
     Route: 048

REACTIONS (3)
  - ABNORMAL BEHAVIOUR [None]
  - RESTLESSNESS [None]
  - STUPOR [None]
